FAERS Safety Report 5053769-X (Version None)
Quarter: 2006Q3

REPORT INFORMATION
  Report Type: 
  Country: None (occurrence: None)
  Receive Date: 20060718
  Receipt Date: 20060711
  Transmission Date: 20061208
  Serious: Yes (Other)
  Sender: FDA-Public Use
  Company Number: 2006UW14314

PATIENT
  Age: 67 Year
  Sex: Male

DRUGS (1)
  1. IRESSA [Suspect]
     Indication: BRONCHIOLOALVEOLAR CARCINOMA
     Route: 048

REACTIONS (3)
  - CHILLS [None]
  - HOT FLUSH [None]
  - PNEUMONIA [None]
